FAERS Safety Report 4431715-7 (Version None)
Quarter: 2004Q3

REPORT INFORMATION
  Report Type: 
  Country: None (occurrence: None)
  Receive Date: 20040825
  Receipt Date: 20040818
  Transmission Date: 20050211
  Serious: Yes (Other)
  Sender: FDA-Public Use
  Company Number: US-BRISTOL-MYERS SQUIBB COMPANY-12674065

PATIENT
  Sex: Male

DRUGS (2)
  1. SERZONE [Suspect]
     Indication: DEPRESSION
     Route: 048
     Dates: start: 19990101
  2. ZOLOFT [Concomitant]

REACTIONS (1)
  - HEPATITIS C [None]
